FAERS Safety Report 10342485 (Version 3)
Quarter: 2014Q3

REPORT INFORMATION
  Report Type: Spontaneous
  Country: JP (occurrence: JP)
  Receive Date: 20140725
  Receipt Date: 20140801
  Transmission Date: 20150326
  Serious: Yes (Hospitalization, Other)
  Sender: FDA-Public Use
  Company Number: JP-ELI_LILLY_AND_COMPANY-JP201407001215

PATIENT
  Age: 76 Year
  Sex: Female

DRUGS (1)
  1. FORTEO [Suspect]
     Active Substance: TERIPARATIDE
     Indication: OSTEOPOROSIS
     Dosage: 20 UG, QD
     Route: 058
     Dates: start: 20140219, end: 20140702

REACTIONS (5)
  - Asthma [Unknown]
  - Injection site erythema [Unknown]
  - Injection site pruritus [Unknown]
  - Pruritus [Unknown]
  - Generalised erythema [Recovering/Resolving]

NARRATIVE: CASE EVENT DATE: 2014
